FAERS Safety Report 10923361 (Version 1)
Quarter: 2015Q1

REPORT INFORMATION
  Report Type: Spontaneous
  Country: US (occurrence: US)
  Receive Date: 20150318
  Receipt Date: 20150318
  Transmission Date: 20150721
  Serious: Yes (Hospitalization)
  Sender: FDA-Public Use
  Company Number: US-AUROBINDO-AUR-APL-2015-02139

PATIENT
  Age: 17 Year
  Sex: Male

DRUGS (3)
  1. QUETIAPINE [Suspect]
     Active Substance: QUETIAPINE
     Indication: ABNORMAL BEHAVIOUR
     Dosage: UNK
     Route: 065
  2. SERTRALINE [Suspect]
     Active Substance: SERTRALINE HYDROCHLORIDE
     Indication: ABNORMAL BEHAVIOUR
     Dosage: UNK
     Route: 065
  3. TEMAZEPAM. [Suspect]
     Active Substance: TEMAZEPAM
     Indication: CIRCADIAN RHYTHM SLEEP DISORDER
     Dosage: UNK
     Route: 065

REACTIONS (8)
  - Generalised tonic-clonic seizure [Recovered/Resolved]
  - Metabolic encephalopathy [Recovered/Resolved]
  - Communication disorder [Recovered/Resolved]
  - Mental status changes [Recovered/Resolved]
  - Condition aggravated [Recovered/Resolved]
  - Drug withdrawal syndrome [Recovering/Resolving]
  - Hyponatraemia [Recovered/Resolved]
  - Social avoidant behaviour [Recovered/Resolved]
